FAERS Safety Report 6444522-0 (Version None)
Quarter: 2009Q4

REPORT INFORMATION
  Report Type: 
  Country: None (occurrence: None)
  Receive Date: 20091118
  Receipt Date: 20091109
  Transmission Date: 20100525
  Serious: Yes (Hospitalization)
  Sender: FDA-Public Use
  Company Number: US-NOVOPROD-300519

PATIENT
  Sex: Female
  Weight: 73.016 kg

DRUGS (2)
  1. NOVOLOG [Suspect]
     Indication: TYPE 1 DIABETES MELLITUS
     Dosage: 8 IU, TID
     Route: 058
     Dates: start: 20090921
  2. LANTUS [Suspect]
     Indication: TYPE 1 DIABETES MELLITUS
     Dosage: 25 IU, QD
     Route: 058
     Dates: start: 20090921

REACTIONS (1)
  - LOSS OF CONSCIOUSNESS [None]
